FAERS Safety Report 13676641 (Version 2)
Quarter: 2017Q2

REPORT INFORMATION
  Report Type: Spontaneous
  Country: US (occurrence: US)
  Receive Date: 20170622
  Receipt Date: 20170627
  Transmission Date: 20170830
  Serious: No
  Sender: FDA-Public Use
  Company Number: US-PFIZER INC-2017267659

PATIENT
  Age: 50 Year
  Sex: Female
  Weight: 106.5 kg

DRUGS (2)
  1. PROCARDIA [Suspect]
     Active Substance: NIFEDIPINE
     Indication: OESOPHAGEAL ACHALASIA
     Dosage: 10 MG, 3X/DAY
  2. SYNTHROID [Concomitant]
     Active Substance: LEVOTHYROXINE SODIUM
     Indication: THYROID DISORDER
     Dosage: 0.15 MG, 1X/DAY(TAKES 1 A DAY)

REACTIONS (4)
  - Oesophageal disorder [Unknown]
  - Product use in unapproved indication [Not Recovered/Not Resolved]
  - Intercepted product storage error [Unknown]
  - Gastrooesophageal reflux disease [Unknown]
